FAERS Safety Report 5779784-6 (Version None)
Quarter: 2008Q2

REPORT INFORMATION
  Report Type: 
  Country: None (occurrence: None)
  Receive Date: 20080618
  Receipt Date: 20080513
  Transmission Date: 20081010
  Serious: No
  Sender: FDA-Public Use
  Company Number: 08H-036-0314421-00

PATIENT
  Sex: Female

DRUGS (4)
  1. VANCOMYCIN HCL [Suspect]
     Indication: PROPHYLAXIS
     Dosage: 1000 MG, ONCE; INTRAVENOUS
     Route: 042
     Dates: start: 20080510, end: 20080510
  2. HARTMAN SOLUTION (SOLITA-T1) [Suspect]
     Indication: PROPHYLAXIS
     Dosage: 500 CC, ONCE; INTRAVENOUS
     Route: 042
     Dates: start: 20080510, end: 20080510
  3. DEXAMETHASONE TAB [Concomitant]
  4. EV DILUTION [Concomitant]

REACTIONS (3)
  - GENERALISED OEDEMA [None]
  - PRURITUS [None]
  - RASH [None]
